FAERS Safety Report 8831675 (Version 2)
Quarter: 2012Q4

REPORT INFORMATION
  Report Type: 
  Country: US (occurrence: US)
  Receive Date: 20121009
  Receipt Date: 20121026
  Transmission Date: 20130627
  Serious: No
  Sender: FDA-Public Use
  Company Number: US-BAYER-2012-104060

PATIENT
  Age: 57 Year
  Sex: Female

DRUGS (2)
  1. CLIMARA PRO [Suspect]
     Indication: HOT FLASHES
     Dosage: UNK
     Route: 062
  2. ANTIHYPERTENSIVES [Concomitant]
     Indication: BLOOD PRESSURE HIGH

REACTIONS (5)
  - Hot flush [Not Recovered/Not Resolved]
  - Night sweats [Not Recovered/Not Resolved]
  - Menopausal symptoms [None]
  - Feeling abnormal [None]
  - Hyperhidrosis [None]
